FAERS Safety Report 6885007-7 (Version None)
Quarter: 2010Q3

REPORT INFORMATION
  Report Type: 
  Country: None (occurrence: None)
  Receive Date: 20100729
  Receipt Date: 20071022
  Transmission Date: 20110219
  Serious: No
  Sender: FDA-Public Use
  Company Number: US-PFIZER INC-2007089335

PATIENT
  Sex: Female
  Weight: 65.77 kg

DRUGS (12)
  1. CELEBREX [Suspect]
     Indication: SPONDYLITIS
     Route: 048
     Dates: start: 20070101
  2. SYNTHROID [Concomitant]
  3. GLUCOTROL [Concomitant]
  4. PLAVIX [Concomitant]
  5. LEXAPRO [Concomitant]
  6. DETROL [Concomitant]
  7. GALANTAMINE HYDROBROMIDE [Concomitant]
  8. AVAPRO [Concomitant]
  9. PRILOSEC [Concomitant]
  10. NAMENDA [Concomitant]
  11. K-DUR [Concomitant]
  12. NORVASC [Concomitant]

REACTIONS (2)
  - FLATULENCE [None]
  - MUSCLE SPASMS [None]
